FAERS Safety Report 9091945 (Version 1)
Quarter: 2013Q1

REPORT INFORMATION
  Report Type: Spontaneous
  Country: IT (occurrence: IT)
  Receive Date: 20130201
  Receipt Date: 20130201
  Transmission Date: 20140127
  Serious: Yes (Other)
  Sender: FDA-Public Use
  Company Number: IT-MERCK-1301ITA013437

PATIENT
  Age: 54 Year
  Sex: Female

DRUGS (8)
  1. SIMVASTATIN [Suspect]
     Dosage: 1 DF, QD
     Route: 048
     Dates: start: 20111116
  2. AULIN [Suspect]
     Dosage: 100 MG, TOTAL
     Route: 048
     Dates: start: 20121114, end: 20121114
  3. METFORMIN HYDROCHLORIDE [Suspect]
     Dosage: 1 DF, QD
     Route: 048
     Dates: start: 20111116
  4. PERINDOPRIL ARGININE [Suspect]
     Dosage: 1 DF, QD
     Route: 048
     Dates: start: 20111116
  5. CARDICOR [Concomitant]
     Route: 048
  6. ACTOS [Concomitant]
     Route: 048
  7. MODURETIC [Concomitant]
     Route: 048
  8. AGGRENOX [Concomitant]
     Route: 048

REACTIONS (1)
  - Hypertransaminasaemia [Not Recovered/Not Resolved]
